FAERS Safety Report 10144753 (Version 1)
Quarter: 2014Q2

REPORT INFORMATION
  Report Type: Spontaneous
  Country: US (occurrence: US)
  Receive Date: 20140430
  Receipt Date: 20140430
  Transmission Date: 20141212
  Serious: No
  Sender: FDA-Public Use
  Company Number: US-SANOFI-AVENTIS-2013SA071041

PATIENT
  Age: 25 Year
  Sex: Female

DRUGS (2)
  1. ENOXAPARIN SODIUM - WINTHROP [Suspect]
     Route: 065
     Dates: start: 201307
  2. ENOXAPARIN SODIUM - WINTHROP [Suspect]
     Route: 065
     Dates: start: 201307

REACTIONS (1)
  - Pain in extremity [Unknown]
